FAERS Safety Report 4377809-6 (Version None)
Quarter: 2004Q2

REPORT INFORMATION
  Report Type: 
  Country: None (occurrence: None)
  Receive Date: 20040609
  Receipt Date: 20040528
  Transmission Date: 20050107
  Serious: Yes (Hospitalization)
  Sender: FDA-Public Use
  Company Number: 04P-087-0262377-00

PATIENT
  Age: 66 Year
  Sex: Female

DRUGS (1)
  1. TRICOR [Suspect]
     Indication: HYPERLIPIDAEMIA
     Dosage: 150 MG, 2 IN 1 D, PER ORAL
     Dates: start: 20040329, end: 20040412

REACTIONS (1)
  - JAUNDICE CHOLESTATIC [None]
